FAERS Safety Report 5300019-2 (Version None)
Quarter: 2007Q2

REPORT INFORMATION
  Report Type: 
  Country: None (occurrence: None)
  Receive Date: 20070410
  Receipt Date: 20070330
  Transmission Date: 20071010
  Serious: Yes (Disabling)
  Sender: FDA-Public Use
  Company Number: B0462923A

PATIENT
  Age: 56 Year
  Sex: Female
  Weight: 51.8915 kg

DRUGS (3)
  1. ARIXTRA [Suspect]
     Indication: DEEP VEIN THROMBOSIS
     Dosage: 7.5 MG / PER DAY / SUBCUTANEOUS
     Route: 058
     Dates: start: 20070201, end: 20070223
  2. THIOCOLCHICOSIDE [Concomitant]
  3. DI-ANTALVIC [Concomitant]

REACTIONS (4)
  - DEEP VEIN THROMBOSIS [None]
  - DRUG INEFFECTIVE [None]
  - OEDEMA PERIPHERAL [None]
  - PAIN IN EXTREMITY [None]
